FAERS Safety Report 17778010 (Version 1)
Quarter: 2020Q2

REPORT INFORMATION
  Report Type: Report from Study
  Country: DE (occurrence: DE)
  Receive Date: 20200513
  Receipt Date: 20200513
  Transmission Date: 20200714
  Serious: Yes (Death, Life-Threatening, Hospitalization, Disabling, Other)
  Sender: FDA-Public Use
  Company Number: PHHO2013DE008371

PATIENT
  Age: 63 Year
  Sex: Female
  Weight: 58 kg

DRUGS (2)
  1. RAD 666 / RAD 001A [Suspect]
     Active Substance: EVEROLIMUS
     Dosage: UNK
     Route: 048
     Dates: start: 20130320, end: 20130704
  2. RAD 666 / RAD 001A [Suspect]
     Active Substance: EVEROLIMUS
     Dosage: UNK
     Route: 048
     Dates: start: 20130520, end: 20130614

REACTIONS (5)
  - Neoplasm progression [Fatal]
  - Infection [Recovered/Resolved]
  - Weight decreased [Fatal]
  - Pericardial effusion [Recovered/Resolved with Sequelae]
  - Respiratory failure [Fatal]

NARRATIVE: CASE EVENT DATE: 201305
